FAERS Safety Report 7757610-3 (Version None)
Quarter: 2011Q3

REPORT INFORMATION
  Report Type: 
  Country: None (occurrence: None)
  Receive Date: 20110916
  Receipt Date: 20110906
  Transmission Date: 20111222
  Serious: Yes (Other)
  Sender: FDA-Public Use
  Company Number: US-ALLERGAN-1109744US

PATIENT
  Sex: Male

DRUGS (1)
  1. REFRESH PLUS [Suspect]
     Indication: DRY EYE
     Dosage: SEVERAL VIALS AS NEEDED
     Route: 047
     Dates: start: 20110629

REACTIONS (9)
  - INTRAOCULAR PRESSURE INCREASED [None]
  - EYE SWELLING [None]
  - ABNORMAL SENSATION IN EYE [None]
  - EYE PAIN [None]
  - VISION BLURRED [None]
  - VISUAL ACUITY REDUCED [None]
  - EYE IRRITATION [None]
  - SUICIDAL IDEATION [None]
  - OCULAR HYPERAEMIA [None]
